FAERS Safety Report 9232018 (Version 1)
Quarter: 2013Q2

REPORT INFORMATION
  Report Type: Spontaneous
  Country: US (occurrence: US)
  Receive Date: 20130415
  Receipt Date: 20130415
  Transmission Date: 20140414
  Serious: No
  Sender: FDA-Public Use
  Company Number: US-PFIZER INC-2013116803

PATIENT
  Age: 44 Year
  Sex: Male
  Weight: 107 kg

DRUGS (7)
  1. LYRICA [Suspect]
     Indication: DIABETIC NEUROPATHY
     Dosage: 100 MG IN MORNING AND 200 MG AT NIGHT, 2X/DAY
     Dates: start: 201301
  2. LYRICA [Suspect]
     Indication: NEUROPATHY PERIPHERAL
  3. NEURONTIN [Suspect]
     Indication: DIABETIC NEUROPATHY
     Dosage: 4800 MG, DAILY
     Dates: end: 201301
  4. NEURONTIN [Suspect]
     Indication: NEUROPATHY PERIPHERAL
  5. CYMBALTA [Concomitant]
     Indication: DEPRESSION
     Dosage: 50 MG, DAILY
  6. CYMBALTA [Concomitant]
     Indication: BACK PAIN
  7. INSULIN [Concomitant]
     Indication: DIABETES MELLITUS
     Dosage: 65 IU, UNK

REACTIONS (2)
  - Oedema peripheral [Not Recovered/Not Resolved]
  - Drug ineffective [Unknown]
